FAERS Safety Report 4563259-6 (Version None)
Quarter: 2005Q1

REPORT INFORMATION
  Report Type: 
  Country: None (occurrence: None)
  Receive Date: 20050121
  Receipt Date: 20050110
  Transmission Date: 20050727
  Serious: Yes (Hospitalization, Other)
  Sender: FDA-Public Use
  Company Number: 2004053285

PATIENT
  Age: 54 Year
  Sex: Male

DRUGS (4)
  1. LIPITOR [Suspect]
     Indication: HYPERLIPIDAEMIA
     Dosage: (UNKNOWN), ORAL
     Route: 048
  2. DILTIAZEM [Concomitant]
  3. HYDROCHLOROTHIAZIDE [Concomitant]
  4. IRBESARTAN [Concomitant]

REACTIONS (1)
  - RHABDOMYOLYSIS [None]
